FAERS Safety Report 9230988 (Version 1)
Quarter: 2013Q2

REPORT INFORMATION
  Report Type: Spontaneous
  Country: US (occurrence: US)
  Receive Date: 20130415
  Receipt Date: 20130415
  Transmission Date: 20140414
  Serious: Yes (Other)
  Sender: FDA-Public Use
  Company Number: US-JNJFOC-20130403853

PATIENT
  Sex: Male

DRUGS (4)
  1. RISPERDAL [Suspect]
     Indication: SCHIZOPHRENIA
     Route: 048
     Dates: end: 20090616
  2. TESTOSTERONE [Suspect]
     Indication: PRODUCT USED FOR UNKNOWN INDICATION
     Dosage: TWICE
     Route: 048
     Dates: start: 2009, end: 2010
  3. DEPAKOTE [Concomitant]
     Indication: SCHIZOPHRENIA
     Dosage: DAILY AT NIGHT
     Route: 048
     Dates: start: 20130306, end: 20130321
  4. DEPAKOTE [Concomitant]
     Indication: SCHIZOPHRENIA
     Dosage: DAILY AT NIGHT
     Route: 048
     Dates: start: 20130323

REACTIONS (2)
  - Dilatation ventricular [Unknown]
  - Mania [Unknown]
